FAERS Safety Report 16326939 (Version 2)
Quarter: 2019Q2

REPORT INFORMATION
  Report Type: Spontaneous
  Country: GB (occurrence: GB)
  Receive Date: 20190517
  Receipt Date: 20190617
  Transmission Date: 20190711
  Serious: Yes (Hospitalization)
  Sender: FDA-Public Use
  Company Number: GB-MYLANLABS-2019M1046220

PATIENT
  Age: 82 Year
  Sex: Female

DRUGS (8)
  1. ATORVASTATIN [Concomitant]
     Active Substance: ATORVASTATIN
     Dosage: 20 MILLIGRAM
     Dates: end: 20180919
  2. ALGESAL                            /00021209/ [Concomitant]
     Dosage: UNK
  3. PARACETAMOL [Concomitant]
     Active Substance: ACETAMINOPHEN
     Dosage: 500 MILLIGRAM
  4. OMEPRAZOLE. [Concomitant]
     Active Substance: OMEPRAZOLE
     Dosage: 20 MILLIGRAM
     Dates: end: 20180919
  5. BISOPROLOL [Suspect]
     Active Substance: BISOPROLOL
     Indication: ATRIAL FIBRILLATION
     Dosage: 1.25 MILLIGRAM (EVERY MORNING)
     Route: 048
     Dates: end: 20180912
  6. DIGOXIN. [Suspect]
     Active Substance: DIGOXIN
     Indication: ATRIAL FIBRILLATION
     Dosage: 125 MICROGRAM (EVERY MORNING)
     Route: 048
     Dates: end: 20180913
  7. WARFARIN [Concomitant]
     Active Substance: WARFARIN
     Dosage: 1 MILLIGRAM
     Dates: end: 20180919
  8. FUROSEMIDE. [Concomitant]
     Active Substance: FUROSEMIDE
     Dosage: DOSE REDUCED
     Dates: end: 20180919

REACTIONS (7)
  - Lower respiratory tract infection [Unknown]
  - Atrioventricular block complete [Unknown]
  - Hypotension [Unknown]
  - Bradycardia [Recovered/Resolved with Sequelae]
  - Acute kidney injury [Unknown]
  - Loss of consciousness [Recovered/Resolved]
  - Pulmonary oedema [Unknown]

NARRATIVE: CASE EVENT DATE: 20180912
